FAERS Safety Report 20532167 (Version 1)
Quarter: 2022Q1

REPORT INFORMATION
  Report Type: Spontaneous
  Country: US (occurrence: US)
  Receive Date: 20220301
  Receipt Date: 20220301
  Transmission Date: 20220423
  Serious: No
  Sender: FDA-Public Use
  Company Number: US-SA-SAC20220222001213

PATIENT
  Age: 58 Year

DRUGS (17)
  1. DUPIXENT [Suspect]
     Active Substance: DUPILUMAB
     Indication: Asthma
     Dosage: 300 MG, QOW
     Route: 058
     Dates: start: 20211005
  2. ATROVENT [Concomitant]
     Active Substance: IPRATROPIUM BROMIDE
     Dosage: UNK
  3. AZITHROMYCIN [Concomitant]
     Active Substance: AZITHROMYCIN
     Dosage: UNK
  4. BENZONATATE [Concomitant]
     Active Substance: BENZONATATE
     Dosage: UNK
  5. CYCLOBENZAPRINE HYDROCHLORIDE [Concomitant]
     Active Substance: CYCLOBENZAPRINE HYDROCHLORIDE
     Dosage: UNK
  6. EZETIMIBE [Concomitant]
     Active Substance: EZETIMIBE
     Dosage: UNK
  7. FARXIGA [Concomitant]
     Active Substance: DAPAGLIFLOZIN PROPANEDIOL
     Dosage: UNK
  8. HYZAAR [Concomitant]
     Active Substance: HYDROCHLOROTHIAZIDE\LOSARTAN POTASSIUM
     Indication: Hypertension
     Dosage: UNK
  9. IPRATROPIUM [Concomitant]
     Active Substance: IPRATROPIUM
     Dosage: 600MG
  10. LANTUS [Concomitant]
     Active Substance: INSULIN GLARGINE
     Dosage: UNK
  11. MONTELUKAST SODIUM [Concomitant]
     Active Substance: MONTELUKAST SODIUM
     Dosage: UNK
  12. PREDNISONE [Concomitant]
     Active Substance: PREDNISONE
     Dosage: UNK
  13. ROSUVASTATIN [Concomitant]
     Active Substance: ROSUVASTATIN
     Dosage: 20MG
  14. SPIRIVA [Concomitant]
     Active Substance: TIOTROPIUM BROMIDE MONOHYDRATE
     Dosage: UNK
  15. TOUJEO [Concomitant]
     Active Substance: INSULIN GLARGINE
     Dosage: UNK
  16. VASCEPA [Concomitant]
     Active Substance: ICOSAPENT ETHYL
     Dosage: UNK
  17. VICTOZA [Concomitant]
     Active Substance: LIRAGLUTIDE
     Dosage: 18MG

REACTIONS (2)
  - Asthma [Unknown]
  - Product use issue [Unknown]

NARRATIVE: CASE EVENT DATE: 20211005
